FAERS Safety Report 7558827-3 (Version None)
Quarter: 2011Q2

REPORT INFORMATION
  Report Type: 
  Country: None (occurrence: None)
  Receive Date: 20110621
  Receipt Date: 20110614
  Transmission Date: 20111010
  Serious: Yes (Other)
  Sender: FDA-Public Use
  Company Number: AT-ROCHE-783165

PATIENT
  Sex: Male

DRUGS (1)
  1. XELODA [Suspect]
     Route: 048
     Dates: start: 20110510, end: 20110514

REACTIONS (2)
  - CHEST PAIN [None]
  - HYPERTENSION [None]
